FAERS Safety Report 5017625-5 (Version None)
Quarter: 2006Q2

REPORT INFORMATION
  Report Type: 
  Country: None (occurrence: None)
  Receive Date: 20060604
  Receipt Date: 20060525
  Transmission Date: 20061013
  Serious: Yes (Life-Threatening, Other)
  Sender: FDA-Public Use
  Company Number: IT-ABBOTT-06P-083-0334223-00

PATIENT
  Sex: Female

DRUGS (1)
  1. ERITROCINA [Suspect]
     Indication: DRUG USE FOR UNKNOWN INDICATION
     Route: 048
     Dates: start: 20060519, end: 20060519

REACTIONS (2)
  - ANAPHYLACTIC REACTION [None]
  - HYPERTENSIVE CRISIS [None]
